FAERS Safety Report 16311038 (Version 2)
Quarter: 2020Q2

REPORT INFORMATION
  Report Type: Spontaneous
  Country: US (occurrence: US)
  Receive Date: 20190514
  Receipt Date: 20200421
  Transmission Date: 20200713
  Serious: Yes (Other)
  Sender: FDA-Public Use
  Company Number: US-ASTRAZENECA-2019SE67376

PATIENT
  Age: 22618 Day
  Sex: Female
  Weight: 98.9 kg

DRUGS (90)
  1. IRON SUPPLEMENT [Concomitant]
     Active Substance: IRON
     Indication: IRON DEFICIENCY
     Dates: start: 201104
  2. MORPHINE [Concomitant]
     Active Substance: MORPHINE
  3. FENOFIBRATE. [Concomitant]
     Active Substance: FENOFIBRATE
  4. ZOLPIDEM TARTRATE. [Concomitant]
     Active Substance: ZOLPIDEM TARTRATE
  5. PIOGLITAZONE. [Concomitant]
     Active Substance: PIOGLITAZONE
  6. LAMOTRIGINE. [Concomitant]
     Active Substance: LAMOTRIGINE
  7. HYDROXYZINE PAMOATE. [Concomitant]
     Active Substance: HYDROXYZINE PAMOATE
  8. VIGAMOX [Concomitant]
     Active Substance: MOXIFLOXACIN HYDROCHLORIDE
  9. FERRITIN [Concomitant]
     Active Substance: FERRITIN
  10. PREVACID [Suspect]
     Active Substance: LANSOPRAZOLE
     Indication: GASTROOESOPHAGEAL REFLUX DISEASE
     Route: 065
     Dates: start: 1995, end: 2000
  11. FLUCONAZOLE. [Concomitant]
     Active Substance: FLUCONAZOLE
     Indication: INFECTION
     Dates: start: 201402, end: 201904
  12. VENTOLIN [Concomitant]
     Active Substance: ALBUTEROL SULFATE
     Indication: BRONCHOSPASM
     Dates: start: 201902
  13. MELOXICAM. [Concomitant]
     Active Substance: MELOXICAM
     Indication: OSTEOARTHRITIS
     Dates: start: 201010
  14. POTASSIUM CHLORIDE. [Concomitant]
     Active Substance: POTASSIUM CHLORIDE
  15. DICLOFENAC [Concomitant]
     Active Substance: DICLOFENAC
  16. IPRATROPIUM BROMIDE. [Concomitant]
     Active Substance: IPRATROPIUM BROMIDE
  17. CLONAZEPAM. [Concomitant]
     Active Substance: CLONAZEPAM
  18. CARBAMAZEPINE. [Concomitant]
     Active Substance: CARBAMAZEPINE
  19. PROPOXYPHENE. [Concomitant]
     Active Substance: PROPOXYPHENE
  20. PRILOSEC [Suspect]
     Active Substance: OMEPRAZOLE MAGNESIUM
     Indication: GASTROOESOPHAGEAL REFLUX DISEASE
     Dosage: GENERIC40.0MG UNKNOWN
     Route: 048
     Dates: start: 20161127
  21. CEFACLOR. [Concomitant]
     Active Substance: CEFACLOR
  22. BACTRIM [Concomitant]
     Active Substance: SULFAMETHOXAZOLE\TRIMETHOPRIM
  23. FLUTICASONE. [Concomitant]
     Active Substance: FLUTICASONE
  24. GABAPENTIN. [Concomitant]
     Active Substance: GABAPENTIN
  25. LINAGLIPTIN [Concomitant]
     Active Substance: LINAGLIPTIN
  26. PRAVASTATIN SODIUM. [Concomitant]
     Active Substance: PRAVASTATIN SODIUM
  27. RISPERIDONE. [Concomitant]
     Active Substance: RISPERIDONE
  28. MIRALAX [Concomitant]
     Active Substance: POLYETHYLENE GLYCOL 3350
  29. ZOLPIDEM [Concomitant]
     Active Substance: ZOLPIDEM TARTRATE
  30. LITHIUM CARBONATE. [Concomitant]
     Active Substance: LITHIUM CARBONATE
  31. METFORMIN HCL [Concomitant]
     Active Substance: METFORMIN HYDROCHLORIDE
  32. NEXIUM [Suspect]
     Active Substance: ESOMEPRAZOLE MAGNESIUM
     Indication: GASTROOESOPHAGEAL REFLUX DISEASE
     Route: 048
     Dates: start: 2001, end: 2010
  33. PROTONIX [Suspect]
     Active Substance: PANTOPRAZOLE SODIUM
     Indication: GASTROOESOPHAGEAL REFLUX DISEASE
     Route: 065
  34. LYRICA [Concomitant]
     Active Substance: PREGABALIN
     Indication: PAIN
     Dates: start: 201604, end: 201911
  35. VITAMIN D [Concomitant]
     Active Substance: VITAMIN D NOS
     Indication: HYPOVITAMINOSIS
     Dates: start: 201104
  36. ONDANSETRON [Concomitant]
     Active Substance: ONDANSETRON
  37. SEROQUEL [Concomitant]
     Active Substance: QUETIAPINE FUMARATE
  38. BROMDAY [Concomitant]
     Active Substance: BROMFENAC SODIUM
  39. NEXIUM [Suspect]
     Active Substance: ESOMEPRAZOLE MAGNESIUM
     Indication: GASTROOESOPHAGEAL REFLUX DISEASE
     Route: 048
  40. PRILOSEC [Suspect]
     Active Substance: OMEPRAZOLE MAGNESIUM
     Indication: GASTROOESOPHAGEAL REFLUX DISEASE
     Route: 048
  41. PREVACID [Suspect]
     Active Substance: LANSOPRAZOLE
     Indication: GASTROOESOPHAGEAL REFLUX DISEASE
     Route: 065
  42. CIPROFLOXACIN. [Concomitant]
     Active Substance: CIPROFLOXACIN
     Indication: EAR INFECTION
     Dates: start: 201405, end: 201904
  43. VITAMIN B12 [Concomitant]
     Active Substance: CYANOCOBALAMIN
     Indication: HYPOVITAMINOSIS
     Dates: start: 201104
  44. HYDROXYZINE [Concomitant]
     Active Substance: HYDROXYZINE HYDROCHLORIDE
  45. FERROUS SULFATE. [Concomitant]
     Active Substance: FERROUS SULFATE
  46. HYDROCODONE BITARTRATE AND ACETAMINOPHEN [Concomitant]
     Active Substance: ACETAMINOPHEN\HYDROCODONE BITARTRATE
  47. PROMETHAZINE [Concomitant]
     Active Substance: PROMETHAZINE HYDROCHLORIDE
  48. TERBINAFINE. [Concomitant]
     Active Substance: TERBINAFINE
  49. EUCERIN [Concomitant]
     Active Substance: ENSULIZOLE\EUCERIN\OCTINOXATE\OCTISALATE\TITANIUM DIOXIDE\ZINC OXIDE
  50. VERPAMIL [Concomitant]
     Active Substance: VERAPAMIL HYDROCHLORIDE
  51. OLANZAPINE. [Concomitant]
     Active Substance: OLANZAPINE
  52. TUSSIONEX PENNKINETIC [Concomitant]
     Active Substance: CHLORPHENIRAMINE\HYDROCODONE
  53. DIPHENOXYLATE [Concomitant]
     Active Substance: DIPHENOXYLATE
  54. NEVANAC [Concomitant]
     Active Substance: NEPAFENAC
  55. BESIVANCE [Concomitant]
     Active Substance: BESIFLOXACIN
  56. PROCTOSOL [Concomitant]
  57. TORSEMIDE. [Concomitant]
     Active Substance: TORSEMIDE
  58. MAGNESIUM OXIDE. [Concomitant]
     Active Substance: MAGNESIUM OXIDE
  59. QUETIAPINE. [Concomitant]
     Active Substance: QUETIAPINE
  60. INDOMETHACIN. [Concomitant]
     Active Substance: INDOMETHACIN
  61. CYCLOBENZAPRINE. [Concomitant]
     Active Substance: CYCLOBENZAPRINE
  62. LIDODERM [Concomitant]
     Active Substance: LIDOCAINE
  63. AMPHETAMINE [Concomitant]
     Active Substance: AMPHETAMINE
  64. NITROFURANTOIN. [Concomitant]
     Active Substance: NITROFURANTOIN
  65. FLUVIRIN NOS [Concomitant]
     Active Substance: INFLUENZA VIRUS VACCINE
  66. ANTIPYRINE [Concomitant]
     Active Substance: ANTIPYRINE
  67. CALCIUM [Concomitant]
     Active Substance: CALCIUM
     Indication: CALCIUM DEFICIENCY
     Dates: start: 201104
  68. VERAPAMIL [Concomitant]
     Active Substance: VERAPAMIL HYDROCHLORIDE
  69. ARIPIPRAZOLE. [Concomitant]
     Active Substance: ARIPIPRAZOLE
  70. EPINEPHRINE. [Concomitant]
     Active Substance: EPINEPHRINE
  71. SUCRALFATE. [Concomitant]
     Active Substance: SUCRALFATE
  72. BUPROPION. [Concomitant]
     Active Substance: BUPROPION
  73. IBUPROFEN. [Concomitant]
     Active Substance: IBUPROFEN
  74. DOXYCYCLINE. [Concomitant]
     Active Substance: DOXYCYCLINE
  75. BREO ELLIPTA [Concomitant]
     Active Substance: FLUTICASONE FUROATE\VILANTEROL TRIFENATATE
  76. PRILOSEC [Suspect]
     Active Substance: OMEPRAZOLE MAGNESIUM
     Indication: GASTROOESOPHAGEAL REFLUX DISEASE
     Route: 048
     Dates: start: 2003, end: 2010
  77. PRILOSEC [Suspect]
     Active Substance: OMEPRAZOLE MAGNESIUM
     Indication: GASTROOESOPHAGEAL REFLUX DISEASE
     Dosage: GENERIC
     Route: 065
     Dates: start: 2010, end: 2016
  78. PROTONIX [Suspect]
     Active Substance: PANTOPRAZOLE SODIUM
     Indication: GASTROOESOPHAGEAL REFLUX DISEASE
     Route: 065
     Dates: start: 2000, end: 2005
  79. HYDROCODONE [Concomitant]
     Active Substance: HYDROCODONE
     Indication: PAIN
     Dates: start: 201402, end: 201904
  80. AZITHROMYCIN ANHYDROUS. [Concomitant]
     Active Substance: AZITHROMYCIN ANHYDROUS
     Indication: INFECTION
     Dates: start: 201911
  81. TRIMETHOPRIM. [Concomitant]
     Active Substance: TRIMETHOPRIM
  82. METOPROLOL SUCCINATE. [Concomitant]
     Active Substance: METOPROLOL SUCCINATE
  83. GUAIFENESIN. [Concomitant]
     Active Substance: GUAIFENESIN
  84. LORATADINE. [Concomitant]
     Active Substance: LORATADINE
  85. ADVAIR DISKUS [Concomitant]
     Active Substance: FLUTICASONE PROPIONATE\SALMETEROL XINAFOATE
  86. LACTULOSE. [Concomitant]
     Active Substance: LACTULOSE
  87. BUTAL-APAP [Concomitant]
  88. CHERATUSSIN [Concomitant]
     Active Substance: AMMONIUM CHLORIDE\DEXTROMETHORPHAN\SODIUM CITRATE
  89. DOXEPIN [Concomitant]
     Active Substance: DOXEPIN
  90. DIVALPROEX [Concomitant]
     Active Substance: DIVALPROEX SODIUM

REACTIONS (3)
  - Chronic kidney disease [Not Recovered/Not Resolved]
  - Acute kidney injury [Unknown]
  - Renal failure [Unknown]

NARRATIVE: CASE EVENT DATE: 20141211
